FAERS Safety Report 23052611 (Version 1)
Quarter: 2023Q4

REPORT INFORMATION
  Report Type: Spontaneous
  Country: FR (occurrence: FR)
  Receive Date: 20231011
  Receipt Date: 20231011
  Transmission Date: 20240109
  Serious: Yes (Other)
  Sender: FDA-Public Use
  Company Number: FR-ALKEM LABORATORIES LIMITED-FR-ALKEM-2023-11122

PATIENT
  Age: 54 Year
  Sex: Male

DRUGS (12)
  1. MYCOPHENOLATE MOFETIL [Suspect]
     Active Substance: MYCOPHENOLATE MOFETIL
     Indication: Prophylaxis against graft versus host disease
     Dosage: UNK
     Route: 065
  2. CYCLOSPORINE [Suspect]
     Active Substance: CYCLOSPORINE
     Indication: Prophylaxis against graft versus host disease
     Dosage: UNK
     Route: 065
  3. CYTARABINE [Suspect]
     Active Substance: CYTARABINE
     Indication: Acute myeloid leukaemia
     Dosage: UNK (INDUCTION THERAPY), ONE COURSE FIRST CYTOLOGICAL REMISSION
     Route: 065
  4. CYTARABINE [Suspect]
     Active Substance: CYTARABINE
     Dosage: UNK (INDUCTION THERAPY), HIGH DOSE, TWO COURSE FIRST CYTOLOGICAL REMISSION
     Route: 065
  5. ETOPOSIDE [Suspect]
     Active Substance: ETOPOSIDE
     Indication: Acute myeloid leukaemia
     Dosage: UNK (INDUCTION THERAPY), ONE COURSE FIRST CYTOLOGICAL REMISSION
     Route: 065
  6. FLUDARABINE [Suspect]
     Active Substance: FLUDARABINE PHOSPHATE
     Indication: Product used for unknown indication
     Dosage: 40 MILLIGRAM/SQ. METER, QD (MYELOABLATIVE CONDITIONING REGIMEN)
     Route: 065
  7. IDARUBICIN [Suspect]
     Active Substance: IDARUBICIN
     Indication: Acute myeloid leukaemia
     Dosage: UNK (INDUCTION THERAPY), ONE COURSE FIRST CYTOLOGICAL REMISSION
     Route: 065
  8. IDARUBICIN [Suspect]
     Active Substance: IDARUBICIN
     Dosage: UNK (INDUCTION THERAPY), TWO COURSE FIRST CYTOLOGICAL REMISSION
     Route: 065
  9. METHOTREXATE [Suspect]
     Active Substance: METHOTREXATE
     Indication: Acute graft versus host disease in skin
     Dosage: 3 MILLIGRAM/SQ. METER
     Route: 042
  10. METHOTREXATE [Suspect]
     Active Substance: METHOTREXATE
     Indication: Graft versus host disease in gastrointestinal tract
  11. ANTI-THYMOCYTE GLOBULIN (RABBIT) NOS [Suspect]
     Active Substance: LAPINE T-LYMPHOCYTE IMMUNE GLOBULIN
     Indication: Product used for unknown indication
     Dosage: 2.5 MILLIGRAM/KILOGRAM, QD (MYELOABLATIVE CONDITIONING REGIMEN)
     Route: 065
  12. THIOTEPA [Suspect]
     Active Substance: THIOTEPA
     Indication: Product used for unknown indication
     Dosage: 5 MILLIGRAM/KILOGRAM, QD (MYELOABLATIVE CONDITIONING REGIMEN)
     Route: 065

REACTIONS (9)
  - Cystitis haemorrhagic [Recovering/Resolving]
  - Acute graft versus host disease in skin [Recovering/Resolving]
  - Graft versus host disease in gastrointestinal tract [Recovering/Resolving]
  - Atypical pneumonia [Recovering/Resolving]
  - BK virus infection [Recovering/Resolving]
  - Mycobacterium haemophilum infection [Recovering/Resolving]
  - Skin infection [Recovering/Resolving]
  - Cytomegalovirus infection reactivation [Recovered/Resolved]
  - Staphylococcal infection [Recovering/Resolving]
